FAERS Safety Report 20483041 (Version 2)
Quarter: 2022Q1

REPORT INFORMATION
  Report Type: Other
  Country: US (occurrence: None)
  Receive Date: 20220217
  Receipt Date: 20220224
  Transmission Date: 20220423
  Serious: Yes (Hospitalization)
  Sender: FDA-Public Use
  Company Number: US-ROCHE-3026670

PATIENT
  Sex: Male

DRUGS (1)
  1. OCREVUS [Suspect]
     Active Substance: OCRELIZUMAB
     Indication: Multiple sclerosis
     Dosage: LAST DATE OF TREATMENT JULY 2021, ANTICIPATED DATE OF TREATMENT 01/JAN/2022? DOT: 08/JUL/2020, 08/JU
     Route: 042

REACTIONS (1)
  - Urinary tract infection [Unknown]
